FAERS Safety Report 25176106 (Version 2)
Quarter: 2025Q2

REPORT INFORMATION
  Report Type: Spontaneous
  Country: DE (occurrence: DE)
  Receive Date: 20250409
  Receipt Date: 20250418
  Transmission Date: 20250717
  Serious: Yes (Other)
  Sender: NOVARTIS
  Company Number: DE-002147023-NVSC2025DE056897

PATIENT
  Sex: Female

DRUGS (1)
  1. KESIMPTA [Suspect]
     Active Substance: OFATUMUMAB
     Indication: Product used for unknown indication
     Route: 065
     Dates: start: 2024

REACTIONS (8)
  - Secondary progressive multiple sclerosis [Unknown]
  - Hemiplegia [Recovered/Resolved]
  - Drug intolerance [Unknown]
  - Feeling abnormal [Unknown]
  - Urine odour abnormal [Unknown]
  - General physical health deterioration [Unknown]
  - Paraesthesia [Unknown]
  - Tongue coated [Unknown]

NARRATIVE: CASE EVENT DATE: 20240101
